FAERS Safety Report 8322644-7 (Version None)
Quarter: 2012Q2

REPORT INFORMATION
  Report Type: 
  Country: None (occurrence: None)
  Receive Date: 20120430
  Receipt Date: 20120423
  Transmission Date: 20120825
  Serious: Yes (Other)
  Sender: FDA-Public Use
  Company Number: IT-MERCK-1204USA04071

PATIENT
  Age: 35 Year
  Sex: Female

DRUGS (4)
  1. ALDOMET [Suspect]
     Indication: HYPERTENSION
     Route: 048
  2. FUROSEMIDE [Concomitant]
     Indication: HYPERCALCAEMIA
     Route: 065
  3. FUROSEMIDE [Concomitant]
     Indication: HYPERTENSION
     Route: 065
  4. ALDOMET [Suspect]
     Indication: HYPERCALCAEMIA
     Route: 048

REACTIONS (2)
  - DRUG INEFFECTIVE [None]
  - MATERNAL EXPOSURE DURING PREGNANCY [None]
